FAERS Safety Report 19090121 (Version 2)
Quarter: 2021Q2

REPORT INFORMATION
  Report Type: Report from Study
  Country: US (occurrence: US)
  Receive Date: 20210404
  Receipt Date: 20210605
  Transmission Date: 20210717
  Serious: Yes (Other)
  Sender: FDA-Public Use
  Company Number: US-TEVA-2021-US-1897391

PATIENT
  Sex: Female

DRUGS (2)
  1. CLARAVIS [Suspect]
     Active Substance: ISOTRETINOIN
     Dosage: AVERAGE DAILY DOSE: 70 MG
     Dates: start: 20201123
  2. CLARAVIS [Suspect]
     Active Substance: ISOTRETINOIN
     Dosage: AVERAGE DAILY DOSE: 70 MG
     Dates: start: 20201123

REACTIONS (1)
  - Unintended pregnancy [Unknown]
